FAERS Safety Report 13132337 (Version 2)
Quarter: 2017Q1

REPORT INFORMATION
  Report Type: Report from Study
  Country: KR (occurrence: KR)
  Receive Date: 20170120
  Receipt Date: 20170314
  Transmission Date: 20170428
  Serious: Yes (Hospitalization)
  Sender: FDA-Public Use
  Company Number: KR-ROCHE-1880196

PATIENT
  Age: 49 Year
  Sex: Female
  Weight: 55 kg

DRUGS (6)
  1. VIREAD [Concomitant]
     Active Substance: TENOFOVIR DISOPROXIL FUMARATE
     Indication: HEPATITIS B
     Route: 048
     Dates: start: 20161011
  2. DOCETAXEL. [Suspect]
     Active Substance: DOCETAXEL
     Indication: BREAST CANCER
     Route: 042
     Dates: start: 20160919
  3. LEGALON [Concomitant]
     Active Substance: MILK THISTLE
     Route: 048
     Dates: start: 20160919, end: 20161009
  4. TRASTUZUMAB [Suspect]
     Active Substance: TRASTUZUMAB
     Indication: HER-2 POSITIVE BREAST CANCER
     Route: 058
     Dates: start: 20160919
  5. LEVOMELS [Concomitant]
     Indication: HEPATITIS B
     Route: 042
     Dates: start: 20161010, end: 20161017
  6. LEGALON [Concomitant]
     Active Substance: MILK THISTLE
     Route: 048
     Dates: start: 20161017, end: 20161129

REACTIONS (3)
  - Aspartate aminotransferase increased [Recovered/Resolved]
  - Hyperbilirubinaemia [Recovered/Resolved]
  - Alanine aminotransferase increased [Recovering/Resolving]

NARRATIVE: CASE EVENT DATE: 20161010
